FAERS Safety Report 12630914 (Version 1)
Quarter: 2016Q3

REPORT INFORMATION
  Report Type: Spontaneous
  Country: IT (occurrence: IT)
  Receive Date: 20160808
  Receipt Date: 20160808
  Transmission Date: 20161109
  Serious: Yes (Life-Threatening, Hospitalization)
  Sender: FDA-Public Use
  Company Number: IT-ABBVIE-16P-083-1695942-00

PATIENT
  Age: 47 Year
  Sex: Male

DRUGS (3)
  1. VALPROIC ACID. [Suspect]
     Active Substance: VALPROIC ACID
     Indication: DEPRESSION
     Route: 065
  2. ARIPIPRAZOLE. [Concomitant]
     Active Substance: ARIPIPRAZOLE
     Indication: DEPRESSION
  3. BUPROPION. [Concomitant]
     Active Substance: BUPROPION
     Indication: DEPRESSION

REACTIONS (10)
  - Diplopia [Unknown]
  - Motor dysfunction [Unknown]
  - Basilar artery occlusion [Recovered/Resolved]
  - Cerebrovascular accident [Recovering/Resolving]
  - Dysarthria [Unknown]
  - Depressed level of consciousness [Unknown]
  - Central nervous system lesion [Unknown]
  - Quadrantanopia [Not Recovered/Not Resolved]
  - Hemiplegia [Recovered/Resolved]
  - NIH stroke scale score increased [Unknown]
